FAERS Safety Report 6664140-9 (Version None)
Quarter: 2010Q2

REPORT INFORMATION
  Report Type: 
  Country: None (occurrence: None)
  Receive Date: 20100401
  Receipt Date: 20100324
  Transmission Date: 20101027
  Serious: Yes (Life-Threatening, Other)
  Sender: FDA-Public Use
  Company Number: B0643226A

PATIENT
  Sex: Female
  Weight: 41 kg

DRUGS (4)
  1. ARIXTRA [Suspect]
     Dosage: 5MG PER DAY
     Route: 058
     Dates: start: 20080127, end: 20080213
  2. PARACETAMOL [Concomitant]
     Indication: PAIN
     Dosage: 1G THREE TIMES PER DAY
     Route: 048
     Dates: start: 20080122
  3. MOTILIUM [Concomitant]
     Indication: VOMITING
     Dosage: 1TAB THREE TIMES PER DAY
     Route: 048
     Dates: start: 20080122
  4. FENTANYL [Concomitant]
     Indication: PAIN
     Route: 062
     Dates: start: 20080124

REACTIONS (11)
  - ABDOMINAL PAIN UPPER [None]
  - ANAEMIA [None]
  - ANXIETY [None]
  - MALAISE [None]
  - PALLOR [None]
  - PERITONEAL HAEMORRHAGE [None]
  - SHOCK HAEMORRHAGIC [None]
  - SPLENIC HAEMATOMA [None]
  - SPLENIC HAEMORRHAGE [None]
  - SPLENIC RUPTURE [None]
  - VOMITING [None]
